FAERS Safety Report 7448601-0 (Version None)
Quarter: 2011Q2

REPORT INFORMATION
  Report Type: 
  Country: None (occurrence: None)
  Receive Date: 20110429
  Receipt Date: 20100521
  Transmission Date: 20111010
  Serious: No
  Sender: FDA-Public Use
  Company Number: US-ASTRAZENECA-2010SE23584

PATIENT
  Age: 77 Year
  Sex: Female

DRUGS (15)
  1. FORTEO [Suspect]
  2. FOSAMAX [Suspect]
  3. OMEPRAZOLE MAGNESIUM [Suspect]
  4. HYDROCHLOROTHIAZIDE [Concomitant]
  5. FOSAMAX [Suspect]
  6. FOLTX [Concomitant]
  7. CRESTOR [Concomitant]
  8. CALCIUM CITRATE [Concomitant]
  9. VITAMIN TAB [Concomitant]
  10. CALCIUM CARBONATE [Suspect]
  11. TEKTURNA [Concomitant]
     Dosage: 300 MGS
  12. NEXIUM [Suspect]
     Route: 048
  13. ACTONEL [Suspect]
  14. ASPIRIN [Concomitant]
  15. COQ10 [Concomitant]

REACTIONS (4)
  - BONE PAIN [None]
  - GASTROINTESTINAL DISORDER [None]
  - DRUG DOSE OMISSION [None]
  - DISCOMFORT [None]
